FAERS Safety Report 14864386 (Version 1)
Quarter: 2018Q2

REPORT INFORMATION
  Report Type: Spontaneous
  Country: US (occurrence: US)
  Receive Date: 20180508
  Receipt Date: 20180508
  Transmission Date: 20180711
  Serious: Yes (Other)
  Sender: FDA-Public Use
  Company Number: US-GILEAD-2018-0336985

PATIENT
  Age: 69 Year
  Sex: Male

DRUGS (11)
  1. EPCLUSA [Suspect]
     Active Substance: SOFOSBUVIR\VELPATASVIR
     Indication: PRODUCT USED FOR UNKNOWN INDICATION
     Route: 065
  2. AMBIEN [Concomitant]
     Active Substance: ZOLPIDEM TARTRATE
  3. MAGNESIUM [Concomitant]
     Active Substance: MAGNESIUM
  4. ALDACTONE [Concomitant]
     Active Substance: SPIRONOLACTONE
  5. FISH OIL [Concomitant]
     Active Substance: FISH OIL
  6. LASIX [Concomitant]
     Active Substance: FUROSEMIDE
  7. LACTULOSE. [Concomitant]
     Active Substance: LACTULOSE
  8. RIBAVIRIN. [Suspect]
     Active Substance: RIBAVIRIN
     Indication: PRODUCT USED FOR UNKNOWN INDICATION
     Route: 065
  9. PERCOCET                           /00446701/ [Concomitant]
     Active Substance: ACETAMINOPHEN\OXYCODONE HYDROCHLORIDE\OXYCODONE TEREPHTHALATE
  10. OMEGA 3                            /01333901/ [Concomitant]
     Active Substance: FISH OIL\TOCOPHEROL
  11. XIFAXAN [Concomitant]
     Active Substance: RIFAXIMIN

REACTIONS (5)
  - Blood bilirubin increased [Unknown]
  - Hepatic mass [Not Recovered/Not Resolved]
  - Hepatic cirrhosis [Unknown]
  - Ascites [Unknown]
  - Abdominal pain upper [Not Recovered/Not Resolved]
